FAERS Safety Report 21129588 (Version 1)
Quarter: 2022Q3

REPORT INFORMATION
  Report Type: Report from Study
  Country: US (occurrence: US)
  Receive Date: 20220726
  Receipt Date: 20220726
  Transmission Date: 20221027
  Serious: Yes (Hospitalization, Other)
  Sender: FDA-Public Use
  Company Number: US-ACADIA PHARMACEUTICALS INC.-ACA-2022-PIM-002393

PATIENT
  Sex: Male

DRUGS (12)
  1. NUPLAZID [Suspect]
     Active Substance: PIMAVANSERIN TARTRATE
     Indication: Parkinson^s disease psychosis
     Dosage: 34 MILLIGRAM, QD
     Route: 048
  2. XANAX [Concomitant]
     Active Substance: ALPRAZOLAM
  3. GLUCOTROL XL [Concomitant]
     Active Substance: GLIPIZIDE
  4. CARBIDOPA\LEVODOPA [Concomitant]
     Active Substance: CARBIDOPA\LEVODOPA
  5. CRESTOR [Concomitant]
     Active Substance: ROSUVASTATIN CALCIUM
  6. LEXAPRO [Concomitant]
     Active Substance: ESCITALOPRAM OXALATE
  7. MAGNESIUM [Concomitant]
     Active Substance: MAGNESIUM
  8. FERROUS SULFATE [Concomitant]
     Active Substance: FERROUS SULFATE
  9. RIVASTIGMINE [Concomitant]
     Active Substance: RIVASTIGMINE
  10. METOPROLOL [Concomitant]
     Active Substance: METOPROLOL
  11. ASPIRIN [Concomitant]
     Active Substance: ASPIRIN
  12. CYANOCOBALAMIN [Concomitant]
     Active Substance: CYANOCOBALAMIN

REACTIONS (2)
  - Seizure [Unknown]
  - Cerebrovascular accident [Unknown]
